FAERS Safety Report 25949283 (Version 1)
Quarter: 2025Q4

REPORT INFORMATION
  Report Type: Report from Study
  Country: BR (occurrence: BR)
  Receive Date: 20251022
  Receipt Date: 20251022
  Transmission Date: 20260117
  Serious: Yes (Other)
  Sender: NOVARTIS
  Company Number: BR-002147023-NVSC2025BR154801

PATIENT
  Sex: Female
  Weight: 72 kg

DRUGS (12)
  1. KISQALI [Suspect]
     Active Substance: RIBOCICLIB SUCCINATE
     Indication: Breast neoplasm
     Dosage: UNK
     Route: 065
     Dates: start: 2022
  2. KISQALI [Suspect]
     Active Substance: RIBOCICLIB SUCCINATE
     Indication: Breast cancer
     Dosage: 3 DOSAGE FORM, QD FOR 21 DAYS AND STOPPED FOR 7 DAYS
     Route: 065
     Dates: start: 202201, end: 202208
  3. KISQALI [Suspect]
     Active Substance: RIBOCICLIB SUCCINATE
     Dosage: 2 DOSAGE FORM (REDUCED DOSE) D FOR 21 DAYS AND STOPPED FOR 7 DAYS
     Route: 065
  4. LETROZOLE [Suspect]
     Active Substance: LETROZOLE
     Indication: Breast cancer
     Dosage: UNK
     Route: 065
     Dates: start: 2022
  5. LETROZOLE [Suspect]
     Active Substance: LETROZOLE
     Dosage: 2.5 MG, QD
     Route: 065
  6. ZOMETA [Suspect]
     Active Substance: ZOLEDRONIC ACID
     Indication: Product used for unknown indication
     Dosage: UNK
     Route: 065
     Dates: start: 2022
  7. BISOPROLOL FUMARATE [Concomitant]
     Active Substance: BISOPROLOL FUMARATE
     Indication: Product used for unknown indication
     Dosage: UNK
     Route: 065
  8. AMLODIPINE\VALSARTAN [Concomitant]
     Active Substance: AMLODIPINE\VALSARTAN
     Indication: Product used for unknown indication
     Dosage: UNK
     Route: 065
  9. CILOSTAZOL [Concomitant]
     Active Substance: CILOSTAZOL
     Indication: Product used for unknown indication
     Dosage: UNK
     Route: 065
  10. Ecasil [Concomitant]
     Indication: Product used for unknown indication
     Dosage: UNK
     Route: 065
  11. EZETIMIBE\ROSUVASTATIN [Concomitant]
     Active Substance: EZETIMIBE\ROSUVASTATIN
     Indication: Product used for unknown indication
     Dosage: UNK
     Route: 065
  12. GLIFAGE [Concomitant]
     Active Substance: METFORMIN HYDROCHLORIDE
     Indication: Product used for unknown indication
     Dosage: UNK
     Route: 065

REACTIONS (25)
  - Chikungunya virus infection [Recovered/Resolved]
  - Complicated appendicitis [Recovered/Resolved]
  - Abdominal pain upper [Recovered/Resolved]
  - Carotid arteriosclerosis [Recovered/Resolved]
  - Aortic arteriosclerosis [Unknown]
  - Osteonecrosis [Unknown]
  - Dry skin [Not Recovered/Not Resolved]
  - Scab [Unknown]
  - Vitiligo [Not Recovered/Not Resolved]
  - Skin discolouration [Unknown]
  - Decreased immune responsiveness [Not Recovered/Not Resolved]
  - Emotional distress [Unknown]
  - Anaemia [Not Recovered/Not Resolved]
  - Carpal tunnel syndrome [Recovering/Resolving]
  - Hypoaesthesia [Recovering/Resolving]
  - Erythema [Recovered/Resolved]
  - Pain [Recovered/Resolved]
  - Gait disturbance [Unknown]
  - Sensitive skin [Unknown]
  - Arthralgia [Recovered/Resolved]
  - Periarthritis [Recovered/Resolved]
  - Aortic aneurysm [Unknown]
  - Pulmonary mass [Unknown]
  - Renal cyst [Unknown]
  - Product supply issue [Unknown]

NARRATIVE: CASE EVENT DATE: 20220101
